APPROVED DRUG PRODUCT: BUPROPION HYDROCHLORIDE
Active Ingredient: BUPROPION HYDROCHLORIDE
Strength: 200MG
Dosage Form/Route: TABLET, EXTENDED RELEASE;ORAL
Application: A076711 | Product #001
Applicant: IMPAX LABORATORIES INC
Approved: Dec 3, 2004 | RLD: No | RS: No | Type: DISCN